FAERS Safety Report 13527149 (Version 1)
Quarter: 2017Q2

REPORT INFORMATION
  Report Type: Spontaneous
  Country: US (occurrence: US)
  Receive Date: 20170509
  Receipt Date: 20170509
  Transmission Date: 20170830
  Serious: Yes (Hospitalization, Other)
  Sender: FDA-Public Use
  Company Number: US-TEVA-766055USA

PATIENT
  Age: 68 Year
  Sex: Male

DRUGS (1)
  1. WARFARIN [Suspect]
     Active Substance: WARFARIN
     Dosage: 5 MG FOR 12 YEARS
     Route: 065

REACTIONS (8)
  - Oedema [Recovering/Resolving]
  - Ventricular hypokinesia [Unknown]
  - Aortic dilatation [Unknown]
  - Ejection fraction abnormal [Unknown]
  - Right ventricular dilatation [Unknown]
  - Skin necrosis [Recovering/Resolving]
  - Biopsy kidney abnormal [Unknown]
  - Left ventricular dilatation [Unknown]
